FAERS Safety Report 25774490 (Version 1)
Quarter: 2025Q3

REPORT INFORMATION
  Report Type: Spontaneous
  Country: CA (occurrence: CA)
  Receive Date: 20250908
  Receipt Date: 20250908
  Transmission Date: 20251021
  Serious: Yes (Other)
  Sender: JOHNSON AND JOHNSON
  Company Number: CA-JNJFOC-20250907026

PATIENT
  Age: 76 Year
  Sex: Female

DRUGS (1)
  1. STELARA [Suspect]
     Active Substance: USTEKINUMAB
     Indication: Psoriasis
     Route: 058

REACTIONS (6)
  - Abdominal pain upper [Recovering/Resolving]
  - Cold sweat [Recovering/Resolving]
  - Intentional product use issue [Unknown]
  - Nausea [Recovering/Resolving]
  - Off label use [Unknown]
  - Wheezing [Recovering/Resolving]
